FAERS Safety Report 15554517 (Version 1)
Quarter: 2018Q4

REPORT INFORMATION
  Report Type: Spontaneous
  Country: IN (occurrence: IN)
  Receive Date: 20181026
  Receipt Date: 20181026
  Transmission Date: 20190205
  Serious: Yes (Other)
  Sender: FDA-Public Use
  Company Number: None

PATIENT
  Age: 40 Year
  Sex: Male
  Weight: 62 kg

DRUGS (3)
  1. TENDOFIRM [Concomitant]
     Dates: start: 20181021, end: 20181024
  2. TAB. ALTRADAY( ACECLOFENAC+RABEPRAZOLE) [Suspect]
     Active Substance: ACECLOFENAC\RABEPRAZOLE
     Indication: PAIN
     Route: 048
     Dates: start: 20181021, end: 20181022
  3. MYOTOP P [Concomitant]
     Dates: start: 20181021, end: 20181025

REACTIONS (2)
  - Lip swelling [None]
  - Eye swelling [None]

NARRATIVE: CASE EVENT DATE: 20181021
